FAERS Safety Report 10592936 (Version 1)
Quarter: 2014Q4

REPORT INFORMATION
  Report Type: Spontaneous
  Country: DE (occurrence: DE)
  Receive Date: 20141119
  Receipt Date: 20141119
  Transmission Date: 20150529
  Serious: Yes (Life-Threatening, Hospitalization, Other)
  Sender: FDA-Public Use
  Company Number: DE-JNJFOC-20141105064

PATIENT
  Age: 22 Year
  Sex: Female

DRUGS (19)
  1. KEPPRA [Suspect]
     Active Substance: LEVETIRACETAM
     Indication: IDIOPATHIC GENERALISED EPILEPSY
     Route: 048
  2. KEPPRA [Suspect]
     Active Substance: LEVETIRACETAM
     Indication: IDIOPATHIC GENERALISED EPILEPSY
     Dosage: ON WEEK 21
     Route: 042
  3. PROPOFOL. [Suspect]
     Active Substance: PROPOFOL
     Indication: IDIOPATHIC GENERALISED EPILEPSY
     Dosage: 3 X 1200 MG
     Route: 042
     Dates: start: 20130625, end: 20130703
  4. VITAMIN B12 [Concomitant]
     Active Substance: CYANOCOBALAMIN
     Indication: VITAMIN B12 DEFICIENCY
     Route: 030
  5. LAMOTRIGINE. [Suspect]
     Active Substance: LAMOTRIGINE
     Indication: IDIOPATHIC GENERALISED EPILEPSY
     Route: 048
     Dates: start: 2008, end: 201305
  6. DIAZEPAM. [Suspect]
     Active Substance: DIAZEPAM
     Indication: IDIOPATHIC GENERALISED EPILEPSY
     Route: 042
  7. NEOSTIGMINE [Suspect]
     Active Substance: NEOSTIGMINE
     Indication: ILEUS PARALYTIC
     Dosage: 3 X 1200 MG
     Route: 041
  8. KEPPRA [Suspect]
     Active Substance: LEVETIRACETAM
     Indication: IDIOPATHIC GENERALISED EPILEPSY
     Route: 048
     Dates: end: 20131011
  9. LAMOTRIGINE. [Suspect]
     Active Substance: LAMOTRIGINE
     Indication: GENERALISED TONIC-CLONIC SEIZURE
     Route: 048
     Dates: start: 2008, end: 201305
  10. MIDAZOLAM [Suspect]
     Active Substance: MIDAZOLAM\MIDAZOLAM HYDROCHLORIDE
     Indication: IDIOPATHIC GENERALISED EPILEPSY
     Dosage: 3 X 1200 MG
     Route: 042
     Dates: start: 20130625, end: 20130703
  11. FOLSAN [Concomitant]
     Active Substance: FOLIC ACID
     Indication: PROPHYLAXIS OF NEURAL TUBE DEFECT
     Route: 030
  12. TOPAMAX [Suspect]
     Active Substance: TOPIRAMATE
     Indication: IDIOPATHIC GENERALISED EPILEPSY
     Route: 048
     Dates: end: 20131011
  13. LORAZEPAM. [Suspect]
     Active Substance: LORAZEPAM
     Indication: IDIOPATHIC GENERALISED EPILEPSY
     Route: 042
     Dates: start: 20130624
  14. CEFUROXIM [Suspect]
     Active Substance: CEFUROXIME
     Indication: URINARY TRACT INFECTION BACTERIAL
     Dosage: 3 X 1200 MG
     Route: 042
  15. PASPERTIN [Suspect]
     Active Substance: METOCLOPRAMIDE HYDROCHLORIDE
     Indication: ILEUS PARALYTIC
     Dosage: 3 X 1200 MG
     Route: 042
  16. FRISIUM [Suspect]
     Active Substance: CLOBAZAM
     Indication: IDIOPATHIC GENERALISED EPILEPSY
     Route: 048
     Dates: end: 20131011
  17. ERGENYL CHRONO [Suspect]
     Active Substance: VALPROIC ACID
     Indication: IDIOPATHIC GENERALISED EPILEPSY
     Dosage: 3 X 1200 MG
     Route: 048
     Dates: start: 20130625, end: 20131011
  18. AMPICILLIN [Suspect]
     Active Substance: AMPICILLIN
     Indication: URINARY TRACT INFECTION BACTERIAL
     Dosage: 3 X 1200 MG
     Route: 042
  19. VITAMIN B6 [Concomitant]
     Active Substance: PYRIDOXINE HYDROCHLORIDE
     Indication: VITAMIN B6 DEFICIENCY
     Route: 030

REACTIONS (5)
  - Premature labour [Not Recovered/Not Resolved]
  - Seizure [Unknown]
  - Exposure during pregnancy [Recovered/Resolved]
  - Ileus paralytic [Unknown]
  - Urinary tract infection [Unknown]
